FAERS Safety Report 20828130 (Version 1)
Quarter: 2022Q2

REPORT INFORMATION
  Report Type: Spontaneous
  Country: US (occurrence: US)
  Receive Date: 20220513
  Receipt Date: 20220513
  Transmission Date: 20220721
  Serious: Yes (Hospitalization)
  Sender: FDA-Public Use
  Company Number: US-TEVA-275718USA

PATIENT
  Age: 62 Year
  Sex: Female

DRUGS (17)
  1. ALENDRONATE SODIUM [Suspect]
     Active Substance: ALENDRONATE SODIUM
     Indication: Osteopenia
     Dosage: 10 MILLIGRAM DAILY; TAKE ON EMPTY STOMACH WITH A FULL GLASS OF WATER. DO NOT EAT OR DRINK OR LIE DOW
     Route: 048
     Dates: start: 200109, end: 201009
  2. FOSAMAX [Suspect]
     Active Substance: ALENDRONATE SODIUM
     Indication: Osteopenia
     Dosage: 10 MILLIGRAM DAILY; TAKE ON EMPTY STOMACH WITH A FULL GLASS OF WATER. DO NOT EAT OR DRINK OR LIE DOW
     Route: 048
     Dates: start: 200109, end: 201009
  3. CALCIUM [Concomitant]
     Active Substance: CALCIUM
     Indication: Osteopenia
     Dosage: 1200 MILLIGRAM DAILY;
     Route: 048
     Dates: start: 2001
  4. VITAMIN D [Concomitant]
     Active Substance: VITAMIN D NOS
     Indication: Osteopenia
     Dosage: 800 IU (INTERNATIONAL UNIT) DAILY;
     Route: 048
     Dates: start: 2001
  5. MULTI-VITAMIN [Concomitant]
     Active Substance: .ALPHA.-TOCOPHEROL ACETATE, DL-\ASCORBIC ACID\CYANOCOBALAMIN\FLUORIDE ION\FOLIC ACID\NIACIN\PYRIDOXI
     Route: 065
     Dates: start: 2001
  6. PRILOSEC [Concomitant]
     Active Substance: OMEPRAZOLE MAGNESIUM
     Indication: Gastric disorder
     Dosage: 40 MILLIGRAM DAILY;
     Route: 048
     Dates: start: 2006
  7. PROTONIX [Concomitant]
     Active Substance: PANTOPRAZOLE SODIUM
     Route: 065
     Dates: start: 200603, end: 200604
  8. ACETAMINOPHEN\HYDROCODONE BITARTRATE [Concomitant]
     Active Substance: ACETAMINOPHEN\HYDROCODONE BITARTRATE
     Indication: Headache
     Dosage: 1 DOSAGE FORMS DAILY; ACETAMINOPHEN 650 MG/HYDROCODONE 10 MG
     Route: 048
  9. CYCLOBENZAPRINE HYDROCHLORIDE [Concomitant]
     Active Substance: CYCLOBENZAPRINE HYDROCHLORIDE
     Indication: Muscle spasms
     Dosage: 20 MILLIGRAM DAILY;
     Route: 048
     Dates: start: 20010907
  10. CYCLOBENZAPRINE HYDROCHLORIDE [Concomitant]
     Active Substance: CYCLOBENZAPRINE HYDROCHLORIDE
     Indication: Hypotonia
  11. SYNTHROID [Concomitant]
     Active Substance: LEVOTHYROXINE SODIUM
     Indication: Hypothyroidism
     Dosage: .175 MILLIGRAM DAILY;
     Route: 048
     Dates: start: 20020521
  12. PROPOXYPHENE HYDROCHLORIDE [Concomitant]
     Active Substance: PROPOXYPHENE HYDROCHLORIDE
     Indication: Pain
     Dosage: 195 MILLIGRAM DAILY;
     Route: 048
     Dates: start: 20021126
  13. OXYCODONE AND ACETAMINOPHEN [Concomitant]
     Active Substance: ACETAMINOPHEN\OXYCODONE HYDROCHLORIDE
     Indication: Pain
     Dosage: ACETAMINOPHEN 325 MG /OXYCODONE 5 MG, TAKE 1 TO 2 TABLETS BY MOUTH EVERY 4 HOURS AS NEEDED
     Route: 048
     Dates: start: 20030512
  14. NAPROXEN [Concomitant]
     Active Substance: NAPROXEN
     Indication: Inflammation
     Dosage: 1000 MILLIGRAM DAILY; FOR 2 WEEKS
     Route: 048
     Dates: start: 20030806
  15. OXYBUTYNIN CHLORIDE [Concomitant]
     Active Substance: OXYBUTYNIN CHLORIDE
     Indication: Bladder disorder
     Dosage: 5 MILLIGRAM DAILY; 1 TAB BY MOUTH AT BED TIMES AS NEEDED TO RELAX BLADDER. MAY TAKE 2 TABLETS EACH N
     Route: 048
     Dates: start: 20021003
  16. TRAMADOL HCL [Concomitant]
     Active Substance: TRAMADOL HYDROCHLORIDE
     Indication: Pain
     Dosage: 100 MILLIGRAM DAILY;
     Route: 048
     Dates: start: 20030429
  17. CEPHALEXIN [Concomitant]
     Active Substance: CEPHALEXIN
     Indication: Infection
     Dosage: 2000 MILLIGRAM DAILY;
     Route: 048
     Dates: start: 20040610

REACTIONS (6)
  - Rib fracture [Unknown]
  - Tibia fracture [Recovered/Resolved]
  - Ankle fracture [Unknown]
  - Periprosthetic fracture [Unknown]
  - Femur fracture [Unknown]
  - Pain in extremity [Not Recovered/Not Resolved]

NARRATIVE: CASE EVENT DATE: 20070601
